FAERS Safety Report 25847468 (Version 1)
Quarter: 2025Q3

REPORT INFORMATION
  Report Type: Spontaneous
  Country: US (occurrence: None)
  Receive Date: 20250923
  Receipt Date: 20250923
  Transmission Date: 20251020
  Serious: Yes (Life-Threatening)
  Sender: FDA-CTU
  Company Number: None

PATIENT
  Age: 59 Year
  Sex: Male
  Weight: 70.3 kg

DRUGS (1)
  1. LUMASON [Suspect]
     Active Substance: SULFUR HEXAFLUORIDE
     Route: 042

REACTIONS (6)
  - Feeling hot [None]
  - Pruritus [None]
  - Nausea [None]
  - Loss of consciousness [None]
  - Seizure [None]
  - Agonal respiration [None]

NARRATIVE: CASE EVENT DATE: 20250920
